FAERS Safety Report 7038384-0 (Version None)
Quarter: 2010Q4

REPORT INFORMATION
  Report Type: 
  Country: None (occurrence: None)
  Receive Date: 20101011
  Receipt Date: 20091123
  Transmission Date: 20110411
  Serious: No
  Sender: FDA-Public Use
  Company Number: US-PFIZER INC-2009301989

PATIENT
  Sex: Male
  Weight: 98.883 kg

DRUGS (4)
  1. GABAPENTIN [Suspect]
     Indication: NERVOUS SYSTEM DISORDER
     Dosage: 300 MG, UNK
     Dates: start: 20090701, end: 20091001
  2. LYRICA [Suspect]
     Indication: NERVOUS SYSTEM DISORDER
     Dosage: 50 MG, 2X/DAY
     Route: 048
     Dates: start: 20091010, end: 20091120
  3. OXYCONTIN [Suspect]
     Indication: PAIN
     Dosage: 10 MG, 2X/DAY
     Dates: start: 20090701
  4. LEVOTHYROXINE SODIUM [Concomitant]
     Indication: THYROID DISORDER
     Dosage: 50 UG, UNK

REACTIONS (12)
  - ABDOMINAL DISCOMFORT [None]
  - CONSTIPATION [None]
  - CRYING [None]
  - DIZZINESS [None]
  - GENERAL PHYSICAL CONDITION ABNORMAL [None]
  - HEADACHE [None]
  - MEMORY IMPAIRMENT [None]
  - MYALGIA [None]
  - PAIN [None]
  - SOMNOLENCE [None]
  - THINKING ABNORMAL [None]
  - VOMITING [None]
